FAERS Safety Report 16072876 (Version 1)
Quarter: 2019Q1

REPORT INFORMATION
  Report Type: Spontaneous
  Country: US (occurrence: US)
  Receive Date: 20190314
  Receipt Date: 20190314
  Transmission Date: 20190418
  Serious: Yes (Life-Threatening, Hospitalization)
  Sender: FDA-Public Use
  Company Number: US-MYLANLABS-2019M1023845

PATIENT
  Age: 14 Year
  Sex: Female
  Weight: 42 kg

DRUGS (5)
  1. AMLODIPINE [Suspect]
     Active Substance: AMLODIPINE BESYLATE
     Dosage: INGESTED A MONTH^S DOSE OF HER REGULAR AMLODIPINE APPROXIMATELY 450MG
     Route: 048
  2. NOREPINEPHRINE. [Suspect]
     Active Substance: NOREPINEPHRINE
     Indication: CARDIAC ARREST
     Route: 050
  3. AMLODIPINE [Suspect]
     Active Substance: AMLODIPINE BESYLATE
     Indication: HYPERTENSION
     Dosage: REGULAR DOSE FOR HYPERTENSION
     Route: 048
  4. EPINEPHRINE. [Suspect]
     Active Substance: EPINEPHRINE
     Indication: CARDIAC ARREST
     Route: 050
  5. VASOPRESSIN. [Suspect]
     Active Substance: VASOPRESSIN
     Indication: CARDIAC ARREST
     Route: 050

REACTIONS (7)
  - Toxicity to various agents [Recovering/Resolving]
  - Hypotension [Recovering/Resolving]
  - Drug ineffective [Recovering/Resolving]
  - Intentional overdose [Recovering/Resolving]
  - Atrioventricular block complete [Recovered/Resolved]
  - Cardiac arrest [Recovering/Resolving]
  - Lethargy [Recovering/Resolving]
